FAERS Safety Report 5052912-6 (Version None)
Quarter: 2006Q3

REPORT INFORMATION
  Report Type: 
  Country: None (occurrence: None)
  Receive Date: 20060712
  Receipt Date: 20060712
  Transmission Date: 20061208
  Serious: Yes (Other)
  Sender: FDA-Public Use
  Company Number: None

PATIENT
  Sex: Female
  Weight: 101.1521 kg

DRUGS (2)
  1. ORTHO EVRA [Suspect]
     Indication: CONTRACEPTION
     Dosage: 3 PACKS 1 EVERY WEEKS 3 WEEKS
     Dates: start: 20060402, end: 20060408
  2. ORTHO EVRA [Suspect]
     Indication: CONTRACEPTION
     Dosage: 3 PACKS 1 EVERY WEEKS 3 WEEKS
     Dates: start: 20060416

REACTIONS (3)
  - ABDOMINAL PAIN UPPER [None]
  - HAEMORRHAGE [None]
  - THROMBOSIS [None]
